FAERS Safety Report 5616566-X (Version None)
Quarter: 2008Q1

REPORT INFORMATION
  Report Type: 
  Country: None (occurrence: None)
  Receive Date: 20080207
  Receipt Date: 20070720
  Transmission Date: 20080703
  Serious: No
  Sender: FDA-Public Use
  Company Number: A0665364A

PATIENT
  Age: 46 Year
  Sex: Female

DRUGS (3)
  1. PAXIL CR [Suspect]
     Indication: DEPRESSION
     Dosage: 25MG PER DAY
     Route: 048
     Dates: start: 20051201
  2. LORAZEPAM [Concomitant]
  3. SYNTHROID [Concomitant]

REACTIONS (1)
  - ACCIDENTAL OVERDOSE [None]
